FAERS Safety Report 17129901 (Version 3)
Quarter: 2020Q2

REPORT INFORMATION
  Report Type: Spontaneous
  Country: US (occurrence: US)
  Receive Date: 20191209
  Receipt Date: 20200625
  Transmission Date: 20200713
  Serious: No
  Sender: FDA-Public Use
  Company Number: US-SA-2019SA174786

PATIENT

DRUGS (3)
  1. CEREZYME [Suspect]
     Active Substance: IMIGLUCERASE
     Dosage: 1600 UNITS, Q3W
     Route: 042
  2. CEREZYME [Suspect]
     Active Substance: IMIGLUCERASE
     Indication: GAUCHER^S DISEASE
     Dosage: 1600 UNITS, Q3W
     Route: 042
     Dates: start: 20190418
  3. CEREZYME [Suspect]
     Active Substance: IMIGLUCERASE
     Dosage: 1600 UNITS, Q3W
     Route: 042

REACTIONS (1)
  - Product dose omission [Unknown]

NARRATIVE: CASE EVENT DATE: 20191123
